FAERS Safety Report 16381778 (Version 1)
Quarter: 2019Q2

REPORT INFORMATION
  Report Type: Spontaneous
  Country: CA (occurrence: TH)
  Receive Date: 20190603
  Receipt Date: 20190603
  Transmission Date: 20190711
  Serious: Yes (Other)
  Sender: FDA-Public Use
  Company Number: CA-ABBVIE-19K-028-2803197-00

PATIENT
  Sex: Male

DRUGS (1)
  1. MAVIRET [Suspect]
     Active Substance: GLECAPREVIR\PIBRENTASVIR
     Indication: HEPATITIS C
     Route: 048

REACTIONS (3)
  - Off label use [Unknown]
  - HIV infection [Unknown]
  - Chronic hepatitis C [Unknown]

NARRATIVE: CASE EVENT DATE: 201903
